FAERS Safety Report 11868816 (Version 1)
Quarter: 2015Q4

REPORT INFORMATION
  Report Type: Spontaneous
  Country: BR (occurrence: BR)
  Receive Date: 20151225
  Receipt Date: 20151225
  Transmission Date: 20160305
  Serious: Yes (Other)
  Sender: FDA-Public Use
  Company Number: BR-ACCORD-036498

PATIENT
  Age: 61 Year
  Sex: Male
  Weight: 51.3 kg

DRUGS (5)
  1. RANITIDINE [Concomitant]
     Active Substance: RANITIDINE\RANITIDINE HYDROCHLORIDE
     Dosage: DAILY DOSAGE: 1 AMPOULE??STRENGTH: 50MG/2ML
     Route: 042
     Dates: start: 20151214, end: 20151214
  2. DEXAMETHASONE. [Concomitant]
     Active Substance: DEXAMETHASONE
     Dosage: S.F (SALINE FLUID) 100ML+DEXAMETHASONE ??DAILY DOSAGE: 10MG/1 AMPOULE
     Route: 042
     Dates: start: 20151214, end: 20151214
  3. ONDANSETRON [Concomitant]
     Active Substance: ONDANSETRON
     Route: 042
     Dates: start: 20151214, end: 20151214
  4. PACLITAXEL/PACLITAXEL LIPOSOME [Suspect]
     Active Substance: PACLITAXEL
     Indication: OESOPHAGEAL CARCINOMA
     Dosage: RECEIVED 6TH CYCLE FROM 14-DEC-2015.
     Route: 042
     Dates: start: 20151214
  5. DIPHENHYDRAMINE. [Concomitant]
     Active Substance: DIPHENHYDRAMINE
     Dosage: S.F (SALINE FLUID) 100ML + DIPHENHYDRAMINE??DAILY DOSAGE: 1 AMPOULE
     Route: 042
     Dates: start: 20151214, end: 20151214

REACTIONS (3)
  - Respiratory distress [Recovered/Resolved]
  - Hypertension [Recovered/Resolved]
  - Off label use [Unknown]

NARRATIVE: CASE EVENT DATE: 20151214
